FAERS Safety Report 12862343 (Version 1)
Quarter: 2016Q4

REPORT INFORMATION
  Report Type: Spontaneous
  Country: US (occurrence: US)
  Receive Date: 20161018
  Receipt Date: 20161018
  Transmission Date: 20170207
  Serious: No
  Sender: FDA-Public Use
  Company Number: None

PATIENT
  Age: 17 Year
  Sex: Female
  Weight: 33.75 kg

DRUGS (1)
  1. NITROFURANTOIN. [Suspect]
     Active Substance: NITROFURANTOIN
     Indication: URINARY TRACT INFECTION
     Dosage: ?          QUANTITY:6 CAPSULE(S);?
     Route: 048
     Dates: start: 20161017, end: 201610

REACTIONS (2)
  - Malaise [None]
  - Dizziness [None]

NARRATIVE: CASE EVENT DATE: 20161018
